FAERS Safety Report 6157399-8 (Version None)
Quarter: 2009Q2

REPORT INFORMATION
  Report Type: 
  Country: None (occurrence: None)
  Receive Date: 20090416
  Receipt Date: 20090407
  Transmission Date: 20091009
  Serious: Yes (Other)
  Sender: FDA-Public Use
  Company Number: JP-PFIZER INC-2009196253

PATIENT

DRUGS (1)
  1. SUNITINIB MALATE [Suspect]
     Route: 048

REACTIONS (1)
  - FISTULA [None]
